FAERS Safety Report 20242149 (Version 1)
Quarter: 2021Q4

REPORT INFORMATION
  Report Type: Spontaneous
  Country: US (occurrence: US)
  Receive Date: 20211228
  Receipt Date: 20211228
  Transmission Date: 20220304
  Serious: Yes (Other)
  Sender: FDA-Public Use
  Company Number: US-PFIZER INC-202101814676

PATIENT
  Age: 85 Year
  Sex: Male

DRUGS (3)
  1. VYNDAMAX [Suspect]
     Active Substance: TAFAMIDIS
     Indication: Ischaemic cardiomyopathy
     Dosage: 61 MG
  2. VYNDAMAX [Suspect]
     Active Substance: TAFAMIDIS
     Indication: Amyloidosis senile
  3. ELIQUIS [Concomitant]
     Active Substance: APIXABAN
     Dosage: 2.5 MG, 2X/DAY

REACTIONS (9)
  - Hypothyroidism [Unknown]
  - Dilatation atrial [Unknown]
  - Right ventricular dysfunction [Unknown]
  - Left ventricular dysfunction [Unknown]
  - Left atrial dilatation [Unknown]
  - Appetite disorder [Recovering/Resolving]
  - Muscle spasms [Unknown]
  - Neck pain [Unknown]
  - Back pain [Unknown]
